FAERS Safety Report 8323177-4 (Version None)
Quarter: 2012Q2

REPORT INFORMATION
  Report Type: 
  Country: None (occurrence: None)
  Receive Date: 20120430
  Receipt Date: 20120426
  Transmission Date: 20120825
  Serious: Yes (Hospitalization, Other)
  Sender: FDA-Public Use
  Company Number: BR-ABBOTT-09P-020-0605288-00

PATIENT
  Sex: Female
  Weight: 85 kg

DRUGS (21)
  1. FOLIC ACID [Concomitant]
     Indication: ANAEMIA
     Route: 048
  2. PRIMIDONE [Concomitant]
     Indication: PAIN
  3. CALCIUM [Concomitant]
     Indication: BONE DISORDER
  4. METHOTREXATE [Suspect]
     Indication: PAIN
     Dates: start: 20090101
  5. PREDNISONE [Concomitant]
     Dates: start: 20120301
  6. METAMIZOLE [Concomitant]
     Indication: PAIN
     Dosage: 40 DROPS EACH 6 HOURS
     Route: 048
  7. LEVOTHYROXINE SODIUM [Concomitant]
     Indication: HYPOTHYROIDISM
     Route: 048
  8. DIPYRONE TAB [Concomitant]
     Indication: PAIN
     Dosage: 40 DROPS EVERY 6 HOURS
     Route: 048
  9. PREDNISONE [Concomitant]
     Indication: ARTHRALGIA
     Route: 048
  10. OMEPRAZOLE [Concomitant]
     Indication: PAIN
  11. OMEPRAZOLE [Concomitant]
     Indication: GASTRIC DISORDER
     Route: 048
  12. CARBAMAZEPINE [Concomitant]
     Indication: EPILEPSY
     Route: 048
  13. CARBAMAZEPINE [Concomitant]
  14. FLUOXETINE [Concomitant]
     Indication: ANXIETY
  15. HUMIRA [Suspect]
     Indication: RHEUMATOID ARTHRITIS
     Route: 058
     Dates: start: 20090715
  16. CALCIUM CARBONATE [Concomitant]
     Indication: BONE DISORDER
     Route: 048
  17. LEVOTHYROXINE SODIUM [Concomitant]
     Indication: HYPOTHYROIDISM
     Route: 048
  18. PREDNISONE [Concomitant]
     Route: 048
  19. ENOXAPARIN SODIUM [Concomitant]
     Indication: THROMBOSIS PROPHYLAXIS
     Route: 058
     Dates: start: 20100813
  20. ERITROPOYETINE [Concomitant]
     Indication: ANAEMIA
     Route: 065
     Dates: start: 20090801
  21. LEUCOVORIN CALCIUM [Concomitant]
     Indication: ANAEMIA
     Route: 048

REACTIONS (16)
  - SWELLING [None]
  - OEDEMA PERIPHERAL [None]
  - PAIN [None]
  - MYALGIA [None]
  - WEIGHT INCREASED [None]
  - ANAEMIA [None]
  - APPLICATION SITE PAIN [None]
  - ARTHRALGIA [None]
  - WEIGHT DECREASED [None]
  - GAIT DISTURBANCE [None]
  - INJECTION SITE PAIN [None]
  - ARTHROPATHY [None]
  - BONE EROSION [None]
  - ANXIETY [None]
  - MUSCULOSKELETAL PAIN [None]
  - BACK PAIN [None]
